FAERS Safety Report 6273463-7 (Version None)
Quarter: 2009Q3

REPORT INFORMATION
  Report Type: 
  Country: None (occurrence: None)
  Receive Date: 20090713
  Receipt Date: 20081203
  Transmission Date: 20100115
  Serious: Yes (Hospitalization)
  Sender: FDA-Public Use
  Company Number: 601074

PATIENT
  Age: 81 Year
  Sex: Female

DRUGS (2)
  1. BONIVA [Suspect]
     Indication: DRUG USE FOR UNKNOWN INDICATION
     Dosage: 150 MG  1 PER MONTH  ORAL
     Route: 048
  2. COUGH SYRUP (COUGH PREPARATION NOS) [Concomitant]

REACTIONS (1)
  - DIARRHOEA [None]
